FAERS Safety Report 7041715-9 (Version None)
Quarter: 2010Q4

REPORT INFORMATION
  Report Type: 
  Country: None (occurrence: None)
  Receive Date: 20101013
  Receipt Date: 20100816
  Transmission Date: 20110411
  Serious: No
  Sender: FDA-Public Use
  Company Number: US-ASTRAZENECA-2010SE38439

PATIENT
  Age: 22015 Day
  Sex: Female
  Weight: 89.8 kg

DRUGS (5)
  1. SYMBICORT [Suspect]
     Indication: ASTHMA
     Dosage: 160 MCG BID
     Route: 055
     Dates: start: 20090401
  2. ALBUTEROL [Concomitant]
     Indication: ASTHMA
     Dosage: AS REQUIRED
     Route: 055
  3. FLEXERIL [Concomitant]
     Indication: MUSCLE SPASMS
  4. PERCOCET [Concomitant]
     Indication: PAIN
  5. XANAX [Concomitant]
     Indication: ANXIETY

REACTIONS (1)
  - LUNG INFECTION [None]
